FAERS Safety Report 8995014 (Version 1)
Quarter: 2012Q4

REPORT INFORMATION
  Report Type: Spontaneous
  Country: US (occurrence: None)
  Receive Date: 20121228
  Receipt Date: 20121228
  Transmission Date: 20130627
  Serious: Yes (Life-Threatening, Hospitalization)
  Sender: FDA-Public Use
  Company Number: None

PATIENT
  Age: 76 Year
  Sex: Male

DRUGS (1)
  1. PIPERACILLIN/TAZOBACTAM [Suspect]
     Indication: SOFT TISSUE INFECTION
     Dosage: 3.375 GM Other IV
     Route: 042
     Dates: start: 20121208, end: 20121209

REACTIONS (4)
  - Hypotension [None]
  - Respiratory failure [None]
  - Rash [None]
  - Anaphylactic reaction [None]
